FAERS Safety Report 17761712 (Version 1)
Quarter: 2020Q2

REPORT INFORMATION
  Report Type: Spontaneous
  Country: FR (occurrence: FR)
  Receive Date: 20200508
  Receipt Date: 20200508
  Transmission Date: 20200714
  Serious: Yes (Hospitalization)
  Sender: FDA-Public Use
  Company Number: FR-CADILA HEALTHCARE LIMITED-FR-ZYDUS-026737

PATIENT

DRUGS (7)
  1. METFORMIN [Suspect]
     Active Substance: METFORMIN HYDROCHLORIDE
     Indication: PRODUCT USED FOR UNKNOWN INDICATION
     Dosage: 3000 MILLIGRAM,(INTERVAL :1 DAYS)
     Route: 048
     Dates: end: 20180528
  2. TEICOPLANINE [Concomitant]
     Active Substance: TEICOPLANIN
     Dosage: 800 MILLIGRAM,(INTERVAL :1 DAYS)
     Route: 059
     Dates: start: 20180525
  3. BACTRIM [Suspect]
     Active Substance: SULFAMETHOXAZOLE\TRIMETHOPRIM
     Indication: OSTEITIS
     Dosage: 2400 MILLIGRAM,(INTERVAL :1 DAYS)
     Route: 048
     Dates: start: 20180522, end: 20180528
  4. GLICLAZIDE [Suspect]
     Active Substance: GLICLAZIDE
     Indication: PRODUCT USED FOR UNKNOWN INDICATION
     Dosage: 60 MILLIGRAM,(INTERVAL :1 DAYS)
     Route: 048
     Dates: end: 20180528
  5. DIGOXINE [Suspect]
     Active Substance: DIGOXIN
     Indication: ATRIAL FIBRILLATION
     Dosage: 125 MICROGRAM,(INTERVAL :1 DAYS)
     Route: 048
     Dates: end: 20180529
  6. RIFAMPICINE [Concomitant]
     Active Substance: RIFAMPIN
     Dosage: 900 MILLIGRAM,(INTERVAL :1 DAYS)
     Dates: start: 20180522, end: 20180525
  7. METOCLOPRAMIDE. [Suspect]
     Active Substance: METOCLOPRAMIDE
     Indication: PRODUCT USED FOR UNKNOWN INDICATION
     Dosage: 10 MILLIGRAM
     Route: 048
     Dates: start: 20180519, end: 20180526

REACTIONS (1)
  - Confusional state [Recovered/Resolved]

NARRATIVE: CASE EVENT DATE: 20180526
